FAERS Safety Report 7548086-X (Version None)
Quarter: 2011Q2

REPORT INFORMATION
  Report Type: 
  Country: None (occurrence: None)
  Receive Date: 20110615
  Receipt Date: 20090822
  Transmission Date: 20111010
  Serious: Yes (Other)
  Sender: FDA-Public Use
  Company Number: US-BAYER-200930697NA

PATIENT
  Age: 66 Year
  Sex: Male
  Weight: 63 kg

DRUGS (15)
  1. ACETYLSALICYLIC ACID SRT [Concomitant]
     Dosage: 81 MG, UNK
     Route: 048
  2. LABETALOL HCL [Concomitant]
     Route: 048
  3. LASIX [Concomitant]
     Dosage: 20 MG, UNK
     Route: 048
  4. TRASYLOL [Suspect]
     Dosage: 100 PUMP PRIME
     Route: 042
     Dates: start: 20011003, end: 20011003
  5. HEPARIN [Concomitant]
     Dosage: 100 MG, UNK
     Route: 042
     Dates: start: 20011003, end: 20011003
  6. MANNITOL [Concomitant]
     Dosage: 25 MG, UNK
     Route: 042
     Dates: start: 20011003, end: 20011003
  7. GLUCOTROL [Concomitant]
     Dosage: 5 MG, UNK
     Route: 048
  8. PROTAMINE SULFATE [Concomitant]
     Dosage: 200 MG, UNK
     Route: 042
     Dates: start: 20011003, end: 20011003
  9. TRASYLOL [Suspect]
     Indication: CORONARY ARTERY BYPASS
     Dosage: UNK
     Route: 042
     Dates: start: 20011003
  10. TRASYLOL [Suspect]
     Dosage: 200ML
     Route: 042
     Dates: start: 20011003, end: 20011003
  11. LIPITOR [Concomitant]
     Dosage: 20 MG, UNK
     Route: 048
  12. PLATELETS [Concomitant]
     Dosage: 1 PACK
     Route: 042
     Dates: start: 20011003
  13. NORVASC [Concomitant]
     Dosage: 10 MG, UNK
     Route: 048
  14. VERSED [Concomitant]
     Dosage: 2 MG, UNK
     Route: 042
     Dates: start: 20011003, end: 20011003
  15. RED BLOOD CELLS [Concomitant]
     Dosage: 2 U, UNK
     Route: 042
     Dates: start: 20011003

REACTIONS (10)
  - INJURY [None]
  - STRESS [None]
  - FEAR [None]
  - RENAL IMPAIRMENT [None]
  - RENAL INJURY [None]
  - UNEVALUABLE EVENT [None]
  - EMOTIONAL DISTRESS [None]
  - RENAL FAILURE [None]
  - ANXIETY [None]
  - PAIN [None]
